FAERS Safety Report 6913522-6 (Version None)
Quarter: 2010Q3

REPORT INFORMATION
  Report Type: 
  Country: None (occurrence: None)
  Receive Date: 20100803
  Receipt Date: 20100728
  Transmission Date: 20110219
  Serious: Yes (Hospitalization)
  Sender: FDA-Public Use
  Company Number: ENT 2010-0133

PATIENT
  Age: 59 Year
  Sex: Female

DRUGS (9)
  1. COMTAN [Suspect]
     Indication: PARKINSON'S DISEASE
     Dosage: 250 MG DAILY ORAL ; INCREASED TO 300 MG DAILY ORAL ; DECREASED TO 250 MG DAILY ORAL
     Route: 048
     Dates: start: 20081101, end: 20100111
  2. COMTAN [Suspect]
     Indication: PARKINSON'S DISEASE
     Dosage: 250 MG DAILY ORAL ; INCREASED TO 300 MG DAILY ORAL ; DECREASED TO 250 MG DAILY ORAL
     Route: 048
     Dates: start: 20100112, end: 20100124
  3. COMTAN [Suspect]
     Indication: PARKINSON'S DISEASE
     Dosage: 250 MG DAILY ORAL ; INCREASED TO 300 MG DAILY ORAL ; DECREASED TO 250 MG DAILY ORAL
     Route: 048
     Dates: start: 20100125
  4. CARBIDOPA AND LEVODOPA [Suspect]
     Indication: PARKINSON'S DISEASE
     Dosage: 250 MG/DAY ORAL ; 5 DOSES PER DAY ORAL
     Route: 048
     Dates: start: 20060101
  5. CARBIDOPA AND LEVODOPA [Suspect]
     Indication: PARKINSON'S DISEASE
     Dosage: 250 MG/DAY ORAL ; 5 DOSES PER DAY ORAL
     Route: 048
     Dates: start: 20100108
  6. BI-SIPROL (PRAMIPEXOLE) [Suspect]
     Indication: PARKINSON'S DISEASE
     Dosage: 3 DF DAILY ORAL ; INCREASED TO 4 DF DAILY ORAL
     Route: 048
     Dates: end: 20100118
  7. BI-SIPROL (PRAMIPEXOLE) [Suspect]
     Indication: PARKINSON'S DISEASE
     Dosage: 3 DF DAILY ORAL ; INCREASED TO 4 DF DAILY ORAL
     Route: 048
     Dates: start: 20100119
  8. PRAMIVERINE HYDROCHLORIDE [Concomitant]
  9. ASCORBIC ACID [Concomitant]

REACTIONS (6)
  - ACTIVITIES OF DAILY LIVING IMPAIRED [None]
  - CONDITION AGGRAVATED [None]
  - DRUG EFFECT DECREASED [None]
  - DYSKINESIA [None]
  - ON AND OFF PHENOMENON [None]
  - WRONG TECHNIQUE IN DRUG USAGE PROCESS [None]
